FAERS Safety Report 19969086 (Version 8)
Quarter: 2025Q1

REPORT INFORMATION
  Report Type: Spontaneous
  Country: CA (occurrence: CA)
  Receive Date: 20211019
  Receipt Date: 20250113
  Transmission Date: 20250409
  Serious: Yes (Other)
  Sender: PFIZER
  Company Number: CA-PFIZER INC-202101317694

PATIENT
  Age: 42 Year
  Sex: Male

DRUGS (33)
  1. SOMAVERT [Suspect]
     Active Substance: PEGVISOMANT
     Indication: Acromegaly
     Dosage: 10 MG, 1X/DAY
     Route: 058
     Dates: start: 20180723, end: 2018
  2. SOMAVERT [Suspect]
     Active Substance: PEGVISOMANT
     Dosage: 20 MG, 1X/DAY
     Route: 058
     Dates: start: 2018, end: 20181122
  3. SOMAVERT [Suspect]
     Active Substance: PEGVISOMANT
     Dosage: 20 MG, 1X/DAY
     Route: 058
     Dates: start: 2018, end: 2019
  4. SOMAVERT [Suspect]
     Active Substance: PEGVISOMANT
     Dosage: 25 MG, 1X/DAY DISCONTINUED
     Route: 058
     Dates: start: 2019
  5. SOMAVERT [Suspect]
     Active Substance: PEGVISOMANT
     Dosage: 30 MG, 1X/DAY
     Route: 058
     Dates: start: 2019, end: 2024
  6. SOMAVERT [Suspect]
     Active Substance: PEGVISOMANT
     Route: 058
     Dates: start: 20240417
  7. SOMAVERT [Suspect]
     Active Substance: PEGVISOMANT
     Route: 058
     Dates: start: 2024
  8. ANDROGEL [Concomitant]
     Active Substance: TESTOSTERONE
     Dosage: 5 G, DAILY (1% 5G QDAY)
  9. ANDROGEL [Concomitant]
     Active Substance: TESTOSTERONE
  10. CABERGOLINE [Concomitant]
     Active Substance: CABERGOLINE
  11. CANDESARTAN [Concomitant]
     Active Substance: CANDESARTAN
  12. CORTISONE [Concomitant]
     Active Substance: CORTISONE
  13. COVERSYL ARGI PLUS [Concomitant]
     Dosage: 4 MG, 1X/DAY (4MG/1.25MG), PO QDAY
     Route: 048
  14. COVERSYL ARGI PLUS [Concomitant]
     Dosage: 1.25 MG, 1X/DAY (4MG/1.25MG PO QDAY)
     Route: 048
  15. DESMOPRESSIN [Concomitant]
     Active Substance: DESMOPRESSIN
     Dosage: UNK, 2X/DAY (0.1)
  16. DILTIAZEM [Concomitant]
     Active Substance: DILTIAZEM
  17. DOSTINEX [Concomitant]
     Active Substance: CABERGOLINE
     Dosage: 0.25 MG, WEEKLY X2 DOSES
  18. DOSTINEX [Concomitant]
     Active Substance: CABERGOLINE
     Dosage: 0.5 MG, WEEKLY
  19. FAMCICLOVIR [Concomitant]
     Active Substance: FAMCICLOVIR
  20. FENOFIBRATE [Concomitant]
     Active Substance: FENOFIBRATE
  21. IMODIUM [Concomitant]
     Active Substance: LOPERAMIDE HYDROCHLORIDE
  22. LOPROX [Concomitant]
     Active Substance: CICLOPIROX\CICLOPIROX OLAMINE
     Dosage: UNK, 1X/DAY (TO GROIN QDAY PRN)/5% CREAM TO GROIN QDAY PRN
  23. MOMETASONE [Concomitant]
     Active Substance: MOMETASONE
     Dosage: 50 UG, 1X/DAY (2 SPRAYS IN EACH NOSTRIL PRN)/ (50MCG 2 SPRAYS IN EACH NOSTRIL QDAY PRN)
  24. MTF [Concomitant]
  25. OCTREOTIDE [Concomitant]
     Active Substance: OCTREOTIDE
  26. SIGNIFOR LAR [Concomitant]
     Active Substance: PASIREOTIDE PAMOATE
  27. SIGNIFOR LAR [Concomitant]
     Active Substance: PASIREOTIDE PAMOATE
  28. SIGNIFOR LAR [Concomitant]
     Active Substance: PASIREOTIDE PAMOATE
     Route: 030
  29. SPIRONOLACTONE [Concomitant]
     Active Substance: SPIRONOLACTONE
  30. SPIRONOLACTONE [Concomitant]
     Active Substance: SPIRONOLACTONE
  31. VALACYCLOVIR HYDROCHLORIDE [Concomitant]
     Active Substance: VALACYCLOVIR HYDROCHLORIDE
     Indication: Nodule
     Dosage: 250 MG, 2X/DAY (WHEN LESIONS ARE ACTIVE AT LIPS), PRN
     Route: 048
  32. VITAMIN D NOS [Concomitant]
     Active Substance: CHOLECALCIFEROL\ERGOCALCIFEROL
     Dosage: UNK, WEEKLY (10000)
  33. ZOCOR [Concomitant]
     Active Substance: SIMVASTATIN

REACTIONS (8)
  - Sleep apnoea syndrome [Unknown]
  - Therapeutic product effect incomplete [Unknown]
  - Hypertension [Not Recovered/Not Resolved]
  - Fatigue [Not Recovered/Not Resolved]
  - Blood testosterone decreased [Unknown]
  - Dysuria [Unknown]
  - Arthralgia [Unknown]
  - Off label use [Unknown]

NARRATIVE: CASE EVENT DATE: 20180822
